FAERS Safety Report 5481240-X (Version None)
Quarter: 2007Q4

REPORT INFORMATION
  Report Type: 
  Country: None (occurrence: None)
  Receive Date: 20071010
  Receipt Date: 20071008
  Transmission Date: 20080405
  Serious: Yes (Other)
  Sender: FDA-Public Use
  Company Number: GB-BAYER-1198710566

PATIENT
  Age: 26 Year
  Sex: Male

DRUGS (4)
  1. NIFEDIPINE [Suspect]
     Indication: HYPERTENSION
     Dosage: UNIT DOSE: 10 MG
     Route: 048
     Dates: start: 19840804, end: 19840811
  2. NIFEDIPINE [Suspect]
     Dosage: UNIT DOSE: 10 MG
     Route: 048
     Dates: start: 19840619, end: 19840625
  3. CLOPENTHIXOL [Suspect]
     Route: 030
     Dates: end: 19840728
  4. CHLORPROMAZINE [Concomitant]
     Indication: DRUG USE FOR UNKNOWN INDICATION
     Dosage: UNIT DOSE: 50 MG
     Route: 048

REACTIONS (1)
  - OCULOGYRIC CRISIS [None]
